FAERS Safety Report 21572813 (Version 15)
Quarter: 2024Q1

REPORT INFORMATION
  Report Type: Spontaneous
  Country: US (occurrence: US)
  Receive Date: 20221109
  Receipt Date: 20240220
  Transmission Date: 20240409
  Serious: No
  Sender: FDA-Public Use
  Company Number: US-PFIZER INC-PV202200020895

PATIENT
  Age: 70 Year
  Sex: Female

DRUGS (6)
  1. RETACRIT [Suspect]
     Active Substance: EPOETIN ALFA-EPBX
     Indication: Nephrogenic anaemia
     Dosage: UNK
     Dates: start: 20211015
  2. RETACRIT [Suspect]
     Active Substance: EPOETIN ALFA-EPBX
     Indication: Chronic kidney disease
     Dosage: 8000 IU, WEEKLY
  3. RETACRIT [Suspect]
     Active Substance: EPOETIN ALFA-EPBX
     Dosage: 10000 IU (1 ML), 2X/WEEK, 1 ML TWICE PER WEEK WITH 2 X 4000 UNIT VIAL
     Route: 058
  4. RETACRIT [Suspect]
     Active Substance: EPOETIN ALFA-EPBX
     Dosage: 40000 IU/ML
  5. RETACRIT [Suspect]
     Active Substance: EPOETIN ALFA-EPBX
     Dosage: 2 ML TWICE PER WEEK WITH 1 ML OF 2000 VIAL (TOTAL DOSE 10,000 TWICE PER WEEK)
  6. RETACRIT [Suspect]
     Active Substance: EPOETIN ALFA-EPBX
     Dosage: INJECT 1 VIALS CONTAINS (10,000 UNITS/ML) WEEKLY UNDER SKIN
     Route: 058

REACTIONS (5)
  - Hypoacusis [Unknown]
  - Full blood count decreased [Unknown]
  - Product dispensing error [Unknown]
  - Prescribed overdose [Unknown]
  - Product physical issue [Unknown]
